FAERS Safety Report 14305101 (Version 1)
Quarter: 2017Q4

REPORT INFORMATION
  Report Type: Spontaneous
  Country: JP (occurrence: JP)
  Receive Date: 20171219
  Receipt Date: 20171219
  Transmission Date: 20180321
  Serious: Yes (Life-Threatening, Hospitalization, Disabling, Other)
  Sender: FDA-Public Use
  Company Number: JP-OTSUKA-03100-JPN-07-0218

PATIENT
  Age: 53 Year
  Sex: Male
  Weight: 60 kg

DRUGS (12)
  1. ISOMYTAL [Concomitant]
     Active Substance: AMOBARBITAL SODIUM
     Indication: INSOMNIA
     Dosage: 0.05 G, QD
     Route: 048
     Dates: start: 20051011, end: 20070521
  2. LIPITOR [Concomitant]
     Active Substance: ATORVASTATIN CALCIUM
     Indication: HYPERLIPIDAEMIA
     Dosage: 10 MG, QD
     Route: 048
     Dates: start: 20051011, end: 20070521
  3. PURSENNID [Concomitant]
     Active Substance: SENNOSIDES A AND B
     Indication: CONSTIPATION
     Dosage: 24 MG, QD
     Route: 048
     Dates: start: 20051011, end: 20070521
  4. LORAZEPAM. [Concomitant]
     Active Substance: LORAZEPAM
     Indication: SCHIZOPHRENIA
     Dosage: 1.5 MG, UNK
     Route: 048
     Dates: start: 20051011, end: 20070521
  5. OLANZAPINE. [Concomitant]
     Active Substance: OLANZAPINE
     Indication: PREMEDICATION
     Dosage: 10 MG, UNK
  6. ROHYPNOL [Concomitant]
     Active Substance: FLUNITRAZEPAM
     Indication: INSOMNIA
     Dosage: 2 MG, QD
     Route: 048
     Dates: start: 20051011, end: 20070521
  7. SENNA [Concomitant]
     Active Substance: SENNA LEAF\SENNOSIDES\SENNOSIDES A AND B
     Indication: CONSTIPATION
     Dosage: 12 MG
     Route: 048
     Dates: start: 20051011, end: 20070521
  8. ATORVASTATIN [Concomitant]
     Active Substance: ATORVASTATIN
     Indication: HYPERLIPIDAEMIA
     Dosage: 10 MG, UNK
     Route: 048
     Dates: start: 20051011, end: 20070521
  9. ABILIFY [Suspect]
     Active Substance: ARIPIPRAZOLE
     Indication: SCHIZOPHRENIA
     Dosage: 6 MG, QID
     Route: 048
     Dates: start: 20070410, end: 20070520
  10. BROMVALERYLUREA [Concomitant]
     Active Substance: BROMISOVAL
     Indication: INSOMNIA
     Dosage: 0.15 G, QD
     Route: 048
     Dates: start: 20051011, end: 20070521
  11. WYPAX [Concomitant]
     Active Substance: LORAZEPAM
     Indication: SCHIZOPHRENIA
     Dosage: 0.5 MG, TID
     Route: 048
     Dates: start: 20051011, end: 20070521
  12. FLUNITRAZEPAM [Concomitant]
     Active Substance: FLUNITRAZEPAM
     Indication: INSOMNIA
     Dosage: 2 MG, UNK
     Route: 048
     Dates: start: 20051011, end: 20070521

REACTIONS (3)
  - Acute kidney injury [Recovered/Resolved]
  - Neuroleptic malignant syndrome [Recovered/Resolved]
  - Rhabdomyolysis [Recovering/Resolving]

NARRATIVE: CASE EVENT DATE: 20070521
